FAERS Safety Report 5328275-5 (Version None)
Quarter: 2007Q2

REPORT INFORMATION
  Report Type: 
  Country: None (occurrence: None)
  Receive Date: 20070518
  Receipt Date: 20070514
  Transmission Date: 20071010
  Serious: Yes (Hospitalization)
  Sender: FDA-Public Use
  Company Number: PHMT2007CA01013

PATIENT
  Sex: Female

DRUGS (2)
  1. FAMVIR [Suspect]
     Indication: HERPES SIMPLEX
     Route: 048
  2. AMITRIPTYLINE HCL [Suspect]
     Dosage: 25 MG
     Route: 048

REACTIONS (1)
  - SYNCOPE [None]
